FAERS Safety Report 6053170-6 (Version None)
Quarter: 2009Q1

REPORT INFORMATION
  Report Type: 
  Country: None (occurrence: None)
  Receive Date: 20090122
  Receipt Date: 20081215
  Transmission Date: 20090719
  Serious: No
  Sender: FDA-Public Use
  Company Number: 000136

PATIENT

DRUGS (2)
  1. LACOSAMIDE [Suspect]
     Dosage: (50 MG QD), (50 MG BID)
     Dates: start: 20081201, end: 20081210
  2. LACOSAMIDE [Suspect]
     Dosage: (50 MG QD), (50 MG BID)
     Dates: start: 20081211

REACTIONS (2)
  - ATRIOVENTRICULAR BLOCK SECOND DEGREE [None]
  - TREMOR [None]
